FAERS Safety Report 24818749 (Version 1)
Quarter: 2025Q1

REPORT INFORMATION
  Report Type: Other
  Country: US (occurrence: US)
  Receive Date: 20250108
  Receipt Date: 20250108
  Transmission Date: 20250408
  Serious: Yes (Life-Threatening, Hospitalization)
  Sender: AIRGAS
  Company Number: US-MLMSERVICE-20241223-PI318419- 00273-1

PATIENT
  Weight: 18.6 kg

DRUGS (4)
  1. NITROUS OXIDE [Suspect]
     Active Substance: NITROUS OXIDE
     Indication: Induction of anaesthesia
  2. SEVOFLURANE [Suspect]
     Active Substance: SEVOFLURANE
  3. MORPHINE [Suspect]
     Active Substance: MORPHINE
  4. PROPOFOL [Suspect]
     Active Substance: PROPOFOL

REACTIONS (1)
  - Non-obstructive cardiomyopathy [Recovering/Resolving]
